FAERS Safety Report 7582271-6 (Version None)
Quarter: 2011Q2

REPORT INFORMATION
  Report Type: 
  Country: None (occurrence: None)
  Receive Date: 20110527
  Receipt Date: 20110105
  Transmission Date: 20111010
  Serious: Yes (Hospitalization)
  Sender: FDA-Public Use
  Company Number: US201101001159

PATIENT
  Age: 72 Year
  Sex: Male
  Weight: 88.4 kg

DRUGS (5)
  1. STARLIX [Concomitant]
  2. LANTUS [Concomitant]
  3. BYETTA [Suspect]
     Indication: TYPE 2 DIABETES MELLITUS
     Dosage: 10 UG, 2/D
  4. ACTOS [Concomitant]
  5. METFORMIN HCL [Concomitant]

REACTIONS (4)
  - CHEST PAIN [None]
  - MEMORY IMPAIRMENT [None]
  - OFF LABEL USE [None]
  - NAUSEA [None]
